FAERS Safety Report 23612972 (Version 1)
Quarter: 2024Q1

REPORT INFORMATION
  Report Type: Spontaneous
  Country: US (occurrence: US)
  Receive Date: 20240308
  Receipt Date: 20240308
  Transmission Date: 20240410
  Serious: No
  Sender: FDA-Public Use
  Company Number: US-MYOVANT SCIENCES GMBH-2023MYSCI1200402

PATIENT
  Age: 71 Year
  Sex: Male

DRUGS (2)
  1. ORGOVYX [Suspect]
     Active Substance: RELUGOLIX
     Indication: Prostate cancer
     Dosage: 120 MILLIGRAM, QD
     Route: 048
     Dates: start: 202309
  2. DAROLUTAMIDE [Concomitant]
     Active Substance: DAROLUTAMIDE
     Indication: Prostate cancer
     Dosage: UNK
     Route: 065
     Dates: start: 202310

REACTIONS (3)
  - Therapy interrupted [Not Recovered/Not Resolved]
  - Wrong product administered [Not Recovered/Not Resolved]
  - Incorrect dose administered [Recovered/Resolved]

NARRATIVE: CASE EVENT DATE: 20230901
